FAERS Safety Report 26176077 (Version 2)
Quarter: 2025Q4

REPORT INFORMATION
  Report Type: Spontaneous
  Country: JP (occurrence: JP)
  Receive Date: 20251218
  Receipt Date: 20251229
  Transmission Date: 20260118
  Serious: Yes (Hospitalization, Other)
  Sender: ELI LILLY AND COMPANY
  Company Number: JP-ELI_LILLY_AND_COMPANY-JP202512017491

PATIENT
  Age: 82 Year
  Sex: Female

DRUGS (2)
  1. KISUNLA [Suspect]
     Active Substance: DONANEMAB-AZBT
     Indication: Dementia
     Dosage: 700 MG, UNKNOWN
     Route: 065
  2. DEXAMETHASONE [Suspect]
     Active Substance: DEXAMETHASONE
     Indication: Amyloid related imaging abnormality-oedema/effusion
     Route: 042

REACTIONS (4)
  - Back pain [Unknown]
  - Substance-induced psychotic disorder [Recovering/Resolving]
  - Restlessness [Recovering/Resolving]
  - Amyloid related imaging abnormality-oedema/effusion [Unknown]
